FAERS Safety Report 7815234-3 (Version None)
Quarter: 2011Q4

REPORT INFORMATION
  Report Type: 
  Country: None (occurrence: None)
  Receive Date: 20111014
  Receipt Date: 20111010
  Transmission Date: 20120403
  Serious: Yes (Other)
  Sender: FDA-Public Use
  Company Number: US-ABBOTT-11P-163-0851852-00

PATIENT
  Age: 44 Year
  Sex: Female

DRUGS (4)
  1. OMEPRAZOLE [Concomitant]
     Indication: GASTROOESOPHAGEAL REFLUX DISEASE
  2. HUMIRA [Suspect]
     Indication: CROHN'S DISEASE
     Dates: start: 20110727
  3. WELLBUTRIN [Concomitant]
     Indication: PRODUCT USED FOR UNKNOWN INDICATION
  4. XANAX [Concomitant]
     Indication: PRODUCT USED FOR UNKNOWN INDICATION

REACTIONS (9)
  - PUS IN STOOL [None]
  - COLONIC FISTULA [None]
  - IMPAIRED HEALING [None]
  - DECREASED APPETITE [None]
  - ALOPECIA [None]
  - WEIGHT DECREASED [None]
  - PYREXIA [None]
  - INFECTION [None]
  - SENSATION OF PRESSURE [None]
